FAERS Safety Report 9160262 (Version 1)
Quarter: 2013Q1

REPORT INFORMATION
  Report Type: Spontaneous
  Country: FR (occurrence: FR)
  Receive Date: 20130313
  Receipt Date: 20130313
  Transmission Date: 20140127
  Serious: Yes (Hospitalization)
  Sender: FDA-Public Use
  Company Number: FR-ROCHE-1200606

PATIENT
  Age: 51 Year
  Sex: Female

DRUGS (6)
  1. PEGASYS [Suspect]
     Indication: PRODUCT USED FOR UNKNOWN INDICATION
     Route: 058
     Dates: start: 20090729, end: 20100131
  2. MABTHERA [Suspect]
     Indication: LYMPHOMA
     Route: 042
     Dates: start: 201104
  3. CHLORAMINOPHENE [Suspect]
     Indication: LYMPHOMA
     Route: 048
     Dates: start: 201104
  4. JANUVIA [Concomitant]
     Route: 065
  5. METFORMIN [Concomitant]
     Route: 065
  6. INEXIUM [Concomitant]
     Route: 065

REACTIONS (1)
  - Pulmonary hypertension [Not Recovered/Not Resolved]
